FAERS Safety Report 7266301-7 (Version None)
Quarter: 2011Q1

REPORT INFORMATION
  Report Type: 
  Country: None (occurrence: None)
  Receive Date: 20110131
  Receipt Date: 20110128
  Transmission Date: 20110831
  Serious: Yes (Death, Other)
  Sender: FDA-Public Use
  Company Number: US-PFIZER INC-2011020961

PATIENT
  Sex: Male

DRUGS (3)
  1. TYGACIL [Suspect]
     Dosage: UNK
  2. VANCOMYCIN [Concomitant]
     Dosage: UNK
  3. CIPROFLOXACIN [Concomitant]
     Dosage: UNK

REACTIONS (3)
  - BLOOD AMYLASE ABNORMAL [None]
  - LIPASE ABNORMAL [None]
  - PANCREATITIS [None]
